FAERS Safety Report 8907886 (Version 2)
Quarter: 2013Q2

REPORT INFORMATION
  Report Type: Spontaneous
  Country: BR (occurrence: BR)
  Receive Date: 20121114
  Receipt Date: 20130510
  Transmission Date: 20140414
  Serious: Yes (Other)
  Sender: FDA-Public Use
  Company Number: BR-AMGEN-BRASP2012071648

PATIENT
  Age: 53 Year
  Sex: Female
  Weight: 64 kg

DRUGS (5)
  1. ENBREL [Suspect]
     Indication: RHEUMATOID ARTHRITIS
     Dosage: 50 MG, QWK
     Route: 058
     Dates: start: 201202, end: 201210
  2. ENBREL [Suspect]
     Dosage: 50 MG, QWK
     Route: 058
     Dates: start: 201204, end: 201303
  3. PREDNISONE [Concomitant]
     Dosage: 10 MG, QD
  4. NIMESULIDE [Concomitant]
     Dosage: 100 MG, QD
  5. AMOXICILIN [Concomitant]
     Dosage: UNK

REACTIONS (3)
  - Blood cholesterol increased [Unknown]
  - Urinary tract infection [Not Recovered/Not Resolved]
  - Tooth infection [Not Recovered/Not Resolved]
